FAERS Safety Report 16094938 (Version 1)
Quarter: 2019Q1

REPORT INFORMATION
  Report Type: Spontaneous
  Country: US (occurrence: US)
  Receive Date: 20190320
  Receipt Date: 20190320
  Transmission Date: 20190418
  Serious: No
  Sender: FDA-Public Use
  Company Number: US-PFIZER INC-2019098355

PATIENT
  Age: 77 Year
  Sex: Female
  Weight: 53.7 kg

DRUGS (2)
  1. LYRICA [Suspect]
     Active Substance: PREGABALIN
     Indication: ARACHNOIDITIS
     Dosage: 50 MG, 2X/DAY
     Route: 048
     Dates: start: 201810
  2. DULOXETINE DR [Concomitant]
     Active Substance: DULOXETINE
     Indication: BACK PAIN
     Dosage: 20 MG, 1X/DAY
     Route: 048
     Dates: start: 20190214

REACTIONS (1)
  - Drug effective for unapproved indication [Unknown]
